FAERS Safety Report 8215043-X (Version None)
Quarter: 2012Q1

REPORT INFORMATION
  Report Type: 
  Country: None (occurrence: None)
  Receive Date: 20120229
  Receipt Date: 20110628
  Transmission Date: 20120608
  Serious: Yes (Other)
  Sender: FDA-Public Use
  Company Number: PHHY2011US33817

PATIENT
  Sex: Male

DRUGS (2)
  1. NEORAL [Suspect]
     Indication: NEPHRITIS
     Dosage: 100 MG, BID, ORAL
     Route: 048
     Dates: start: 20100411
  2. NEORAL [Suspect]
     Indication: GLOMERULONEPHRITIS MEMBRANOUS
     Dosage: 100 MG, BID, ORAL
     Route: 048
     Dates: start: 20100411

REACTIONS (3)
  - FOCAL SEGMENTAL GLOMERULOSCLEROSIS [None]
  - RENAL FAILURE CHRONIC [None]
  - CONCOMITANT DISEASE PROGRESSION [None]
